FAERS Safety Report 16939876 (Version 4)
Quarter: 2020Q2

REPORT INFORMATION
  Report Type: Report from Study
  Country: DE (occurrence: DE)
  Receive Date: 20191021
  Receipt Date: 20200402
  Transmission Date: 20200713
  Serious: Yes (Hospitalization, Other)
  Sender: FDA-Public Use
  Company Number: DE-BRISTOL-MYERS SQUIBB COMPANY-BMS-2019-101187

PATIENT
  Age: 66 Year
  Sex: Male

DRUGS (21)
  1. MELPERON [Concomitant]
     Active Substance: MELPERONE
     Indication: MALIGNANT NEOPLASM PROGRESSION
     Dosage: 10 MILLILITER
     Route: 065
     Dates: start: 201712
  2. AMPHOTERICIN B. [Concomitant]
     Active Substance: AMPHOTERICIN B
     Indication: PRODUCT USED FOR UNKNOWN INDICATION
     Dosage: 1 DOSAGE FORM
     Route: 065
     Dates: start: 20190814
  3. RISPERIDON [Concomitant]
     Active Substance: RISPERIDONE
     Indication: PRODUCT USED FOR UNKNOWN INDICATION
     Dosage: 1 MILLILITER
     Route: 065
     Dates: start: 20190814
  4. LORAZEPAM. [Concomitant]
     Active Substance: LORAZEPAM
     Indication: MALIGNANT NEOPLASM PROGRESSION
     Dosage: 1 MILLIGRAM
     Route: 065
     Dates: start: 201810, end: 20190702
  5. METFORMIN [Concomitant]
     Active Substance: METFORMIN HYDROCHLORIDE
     Indication: PROPHYLAXIS
     Dosage: 1000 MILLIGRAM
     Route: 065
     Dates: start: 20190823
  6. ESOMEPRAZOL [ESOMEPRAZOLE] [Concomitant]
     Active Substance: ESOMEPRAZOLE
     Indication: MALIGNANT NEOPLASM PROGRESSION
     Dosage: 40 MILLIGRAM
     Route: 065
     Dates: start: 201806
  7. VALPROINSAEURE [Concomitant]
     Active Substance: VALPROIC ACID
     Indication: MALIGNANT NEOPLASM PROGRESSION
     Dosage: 1 DOSAGE FORM
     Route: 065
     Dates: start: 201712
  8. BUPRENORPHINE. [Concomitant]
     Active Substance: BUPRENORPHINE
     Indication: MALIGNANT NEOPLASM PROGRESSION
     Dosage: 0.2 MILLIGRAM
     Route: 065
     Dates: start: 201806, end: 20190702
  9. MINOCYCLINE [Concomitant]
     Active Substance: MINOCYCLINE HYDROCHLORIDE
     Indication: PRODUCT USED FOR UNKNOWN INDICATION
     Dosage: UNK
     Route: 065
     Dates: start: 20181205, end: 20190509
  10. RISPERIDON [Concomitant]
     Active Substance: RISPERIDONE
     Indication: MALIGNANT NEOPLASM PROGRESSION
     Dosage: 2 MG, UNK
     Route: 065
     Dates: start: 201712
  11. DEXPANTHENOL. [Concomitant]
     Active Substance: DEXPANTHENOL
     Indication: MALIGNANT NEOPLASM PROGRESSION
     Dosage: UNK
     Route: 065
     Dates: start: 201806
  12. AMPHOTERICIN B. [Concomitant]
     Active Substance: AMPHOTERICIN B
     Indication: PRODUCT USED FOR UNKNOWN INDICATION
     Dosage: UNK
     Route: 065
     Dates: start: 20190505, end: 20190702
  13. FRESUBIN LIPID [Concomitant]
     Indication: PRODUCT USED FOR UNKNOWN INDICATION
     Dosage: 1 DOSAGE FORM
     Route: 065
     Dates: start: 201806
  14. METAMIZOL [Concomitant]
     Active Substance: METAMIZOLE SODIUM
     Indication: PRODUCT USED FOR UNKNOWN INDICATION
     Dosage: 1 DOSAGE FORM
     Route: 065
     Dates: start: 201806
  15. COTRIMOXAZOL [Concomitant]
     Active Substance: SULFAMETHOXAZOLE\TRIMETHOPRIM
     Indication: PROPHYLAXIS
     Dosage: 1920 MILLIGRAM
     Route: 065
     Dates: start: 20190814
  16. TROSPIUM CHLORIDE. [Concomitant]
     Active Substance: TROSPIUM CHLORIDE
     Indication: MALIGNANT NEOPLASM PROGRESSION
     Dosage: 30 MG, UNK
     Route: 065
     Dates: start: 201712
  17. BROTIZOLAM [Concomitant]
     Active Substance: BROTIZOLAM
     Indication: PRODUCT USED FOR UNKNOWN INDICATION
     Dosage: 0.25 MILLIGRAM
     Route: 065
     Dates: start: 201806, end: 20190702
  18. NIVOLUMAB [Suspect]
     Active Substance: NIVOLUMAB
     Indication: SQUAMOUS CELL CARCINOMA OF HEAD AND NECK
     Dosage: 3 MILLIGRAM/KILOGRAM, Q2WK
     Route: 042
     Dates: start: 20190125
  19. TAMSULOSIN [Concomitant]
     Active Substance: TAMSULOSIN
     Indication: MALIGNANT NEOPLASM PROGRESSION
     Dosage: 0.4 MILLIGRAM
     Route: 065
     Dates: start: 201712
  20. COTRIM FORTE [Concomitant]
     Active Substance: SULFAMETHOXAZOLE\TRIMETHOPRIM
     Indication: PROPHYLAXIS
     Dosage: 960 MILLIGRAM
     Route: 065
     Dates: start: 20190505, end: 20190702
  21. BEPANTHEN [PANTHENOL] [Concomitant]
     Indication: PROPHYLAXIS
     Dosage: UNK
     Route: 065
     Dates: start: 20190814

REACTIONS (2)
  - Pneumonia pseudomonal [Recovered/Resolved]
  - Pneumonia klebsiella [Recovered/Resolved]

NARRATIVE: CASE EVENT DATE: 20190809
